FAERS Safety Report 19170855 (Version 3)
Quarter: 2022Q3

REPORT INFORMATION
  Report Type: Report from Study
  Country: SE (occurrence: SE)
  Receive Date: 20210423
  Receipt Date: 20220927
  Transmission Date: 20221027
  Serious: Yes (Hospitalization)
  Sender: FDA-Public Use
  Company Number: SE-ABBVIE-19K-150-2972721-00

PATIENT
  Sex: Male
  Weight: 66 kg

DRUGS (12)
  1. CARBIDOPA\LEVODOPA [Suspect]
     Active Substance: CARBIDOPA\LEVODOPA
     Indication: Parkinson^s disease
     Dosage: THERAPY DURATION: REMAINS AT 16H
     Route: 050
     Dates: start: 20140922
  2. CARBIDOPA\LEVODOPA [Suspect]
     Active Substance: CARBIDOPA\LEVODOPA
     Dosage: CURRENT DOSAGE: CONTINUOUS DOSE: 3.0 ML/H, EXTRA DOSE: 2.0 ML.
     Route: 050
     Dates: start: 20210413
  3. CARBIDOPA\LEVODOPA [Suspect]
     Active Substance: CARBIDOPA\LEVODOPA
     Route: 050
     Dates: start: 20141106
  4. CARBIDOPA\LEVODOPA [Suspect]
     Active Substance: CARBIDOPA\LEVODOPA
     Dosage: MORNING DOSE DECREASED FROM 5ML TO 4.5ML.
     Route: 050
     Dates: start: 20210413
  5. CARBIDOPA\LEVODOPA [Suspect]
     Active Substance: CARBIDOPA\LEVODOPA
     Dosage: MORNING DOSE DECREASED FROM 5ML TO 4.5ML.
     Route: 050
     Dates: start: 20210413, end: 20210413
  6. CARBIDOPA\LEVODOPA [Suspect]
     Active Substance: CARBIDOPA\LEVODOPA
     Dosage: CURRENT DOSAGE: MORNING DOSE CHANGED FROM 4.5 ML TO 4ML
     Route: 050
     Dates: start: 20220920
  7. CARBIDOPA\LEVODOPA [Suspect]
     Active Substance: CARBIDOPA\LEVODOPA
     Dosage: CURRENT DOSAGE: CONTINUOUS DOSE: 3.0 ML/H, EXTRA DOSE: 2.0 ML.
     Route: 050
     Dates: start: 20210413
  8. CARBIDOPA\LEVODOPA [Suspect]
     Active Substance: CARBIDOPA\LEVODOPA
     Dosage: CURRENT DOSAGE: CONTINUOUS DOSE 3.3 ML/H, EXTRA DOSE 1.5 ML
     Route: 050
     Dates: start: 20220920
  9. CARBIDOPA\LEVODOPA [Suspect]
     Active Substance: CARBIDOPA\LEVODOPA
     Dosage: CURRENT DOSAGE: MORNING DOSE: 4.5 ML/H. CONTINUOUS DOSE: 3.3?ML/H. EXTRA DOSE: 2.0 ML
     Route: 050
     Dates: start: 20220331
  10. CARBIDOPA\LEVODOPA [Suspect]
     Active Substance: CARBIDOPA\LEVODOPA
     Dosage: CURRENT DOSAGE: MORNING DOSE: 4.5 ML/H. CONTINUOUS DOSE: 3.3 ML/H. EXTRA DOSE: 2.0 ML
     Route: 050
     Dates: start: 20220331
  11. VITAMIN B12 [Concomitant]
     Active Substance: CYANOCOBALAMIN
     Indication: Product used for unknown indication
  12. IMOVANE [Concomitant]
     Active Substance: ZOPICLONE
     Indication: Product used for unknown indication

REACTIONS (13)
  - Urinary tract infection [Recovered/Resolved]
  - Kidney infection [Recovered/Resolved]
  - On and off phenomenon [Not Recovered/Not Resolved]
  - Musculoskeletal stiffness [Not Recovered/Not Resolved]
  - Mastication disorder [Unknown]
  - Pain in jaw [Unknown]
  - Dysphagia [Unknown]
  - Hypophagia [Unknown]
  - Dystonia [Unknown]
  - Nightmare [Recovered/Resolved]
  - Hyperkinesia [Not Recovered/Not Resolved]
  - Weight decreased [Not Recovered/Not Resolved]
  - Parkinson^s disease [Unknown]
